FAERS Safety Report 9028983 (Version 2)
Quarter: 2013Q2

REPORT INFORMATION
  Report Type: Spontaneous
  Country: FR (occurrence: FR)
  Receive Date: 20130123
  Receipt Date: 20130603
  Transmission Date: 20140414
  Serious: Yes (Hospitalization)
  Sender: FDA-Public Use
  Company Number: FR-BRISTOL-MYERS SQUIBB COMPANY-17293283

PATIENT
  Age: 29 Year
  Sex: Male

DRUGS (7)
  1. ABILIFY TABS [Suspect]
     Indication: SCHIZOPHRENIA, PARANOID TYPE
     Route: 048
     Dates: end: 20121204
  2. HALDOL DECANOATE [Suspect]
     Route: 030
  3. VALIUM [Suspect]
     Dosage: 10 DROPS IN THE MORNING AND THE EVENING AND 20 DROPS AT BEDTIME
     Route: 048
  4. LEPTICUR [Suspect]
     Dosage: TABLETS
     Route: 048
  5. DEPAKOTE [Suspect]
     Dosage: GASTRO-RESISTANT TABLET
     Route: 048
     Dates: start: 20121204
  6. TERCIAN [Concomitant]
     Dosage: 50 DROPS AT BREAKFAST AND LUNCH, 200 DROPS AT BEDTIME AND 50 DROPS IF AGITATION.
  7. VALIUM [Concomitant]
     Dosage: 1DF = 1 BULB
     Route: 030

REACTIONS (2)
  - Pulmonary embolism [Recovering/Resolving]
  - Deep vein thrombosis [Recovered/Resolved]
